FAERS Safety Report 11333143 (Version 1)
Quarter: 2015Q3

REPORT INFORMATION
  Report Type: Spontaneous
  Country: US (occurrence: US)
  Receive Date: 20150803
  Receipt Date: 20150803
  Transmission Date: 20151125
  Serious: Yes (Other)
  Sender: FDA-Public Use
  Company Number: US-ELI_LILLY_AND_COMPANY-US200710004567

PATIENT
  Sex: Female
  Weight: 88.89 kg

DRUGS (2)
  1. EFFEXOR [Concomitant]
     Active Substance: VENLAFAXINE HYDROCHLORIDE
  2. ZYPREXA [Suspect]
     Active Substance: OLANZAPINE
     Indication: DEPRESSION
     Dosage: 10 MG, 2/D
     Dates: start: 2000, end: 200611

REACTIONS (4)
  - Migraine [Unknown]
  - Loss of employment [Not Recovered/Not Resolved]
  - Weight increased [Recovering/Resolving]
  - Feeling abnormal [Unknown]
